FAERS Safety Report 9527459 (Version 1)
Quarter: 2013Q3

REPORT INFORMATION
  Report Type: Spontaneous
  Country: US (occurrence: US)
  Receive Date: 20130917
  Receipt Date: 20130917
  Transmission Date: 20140515
  Serious: No
  Sender: FDA-Public Use
  Company Number: US-009507513-1309USA005052

PATIENT
  Age: 60 Year
  Sex: Male

DRUGS (5)
  1. JANUMET [Suspect]
     Indication: TYPE 2 DIABETES MELLITUS
     Dosage: 50/1000 MG/ TWICE DAILY
     Route: 048
     Dates: start: 20130815, end: 20130906
  2. ZOCOR [Concomitant]
     Route: 048
  3. PRINIVIL [Concomitant]
     Route: 048
  4. HYDROCHLOROTHIAZIDE [Concomitant]
  5. COREG [Concomitant]

REACTIONS (1)
  - Diarrhoea [Unknown]
